FAERS Safety Report 25999509 (Version 1)
Quarter: 2025Q4

REPORT INFORMATION
  Report Type: Spontaneous
  Country: EU (occurrence: EU)
  Receive Date: 20251105
  Receipt Date: 20251105
  Transmission Date: 20260117
  Serious: Yes (Other)
  Sender: AUROBINDO
  Company Number: EU-REGENERON PHARMACEUTICALS, INC.-2025-146819

PATIENT
  Sex: Female

DRUGS (6)
  1. CARBOPLATIN [Suspect]
     Active Substance: CARBOPLATIN
     Indication: Chemotherapy
     Dosage: 298 MILLIGRAM,  EVERY 3 WEEKS
     Route: 042
     Dates: start: 20250715, end: 20250715
  2. CARBOPLATIN [Suspect]
     Active Substance: CARBOPLATIN
     Dosage: 548 MILLIGRAM, EVERY 3 WEEKS
     Route: 042
     Dates: start: 20250805
  3. PACLITAXEL [Suspect]
     Active Substance: PACLITAXEL
     Indication: Chemotherapy
     Dosage: 250 MILLIGRAM,  EVERY 3 WEEKS
     Route: 042
     Dates: start: 20250715, end: 20250715
  4. PACLITAXEL [Suspect]
     Active Substance: PACLITAXEL
     Dosage: 548 MILLIGRAM,  EVERY 3 WEEKS
     Route: 042
     Dates: start: 20250805
  5. CEMIPLIMAB [Suspect]
     Active Substance: CEMIPLIMAB
     Indication: Non-small cell lung cancer
     Dosage: 350 MILLIGRAM, EVERY 3 WEEKS
     Route: 042
     Dates: start: 20250715, end: 20250805
  6. CEMIPLIMAB [Suspect]
     Active Substance: CEMIPLIMAB
     Dosage: 350 MILLIGRAM, EVERY 3 WEEKS
     Route: 042
     Dates: start: 20250826

REACTIONS (3)
  - Deafness bilateral [Not Recovered/Not Resolved]
  - Paraesthesia [Not Recovered/Not Resolved]
  - Pyrexia [Recovered/Resolved]

NARRATIVE: CASE EVENT DATE: 20250820
